FAERS Safety Report 7322773-0 (Version None)
Quarter: 2011Q1

REPORT INFORMATION
  Report Type: 
  Country: None (occurrence: None)
  Receive Date: 20110301
  Receipt Date: 20110221
  Transmission Date: 20110831
  Serious: Yes (Other)
  Sender: FDA-Public Use
  Company Number: JP-ASTELLAS-2011JP001099

PATIENT
  Sex: Female
  Weight: 53 kg

DRUGS (7)
  1. PREDNISOLONE [Concomitant]
     Indication: RHEUMATOID ARTHRITIS
     Dosage: 1.5 MG, UID/QD
     Route: 048
     Dates: start: 20090127, end: 20110120
  2. PROGRAF [Suspect]
     Indication: RHEUMATOID ARTHRITIS
     Dosage: 2 MG, UID/QD
     Route: 048
     Dates: start: 20090622, end: 20110120
  3. LIPITOR [Suspect]
     Indication: LIPID METABOLISM DISORDER
     Dosage: 5 MG, UID/QD
     Route: 048
     Dates: start: 20091216
  4. PREDNISOLONE [Concomitant]
     Dosage: UNK
     Route: 048
     Dates: start: 20110204
  5. METOLATE [Concomitant]
     Indication: RHEUMATOID ARTHRITIS
     Dosage: UNK
     Route: 048
     Dates: start: 20090105
  6. FOLIAMIN [Concomitant]
     Indication: RHEUMATOID ARTHRITIS
     Dosage: 5 MG, WEEKLY
     Route: 048
     Dates: start: 20090427
  7. ONEALFA [Concomitant]
     Indication: OSTEOPOROSIS
     Dosage: 0.5 UG, UID/QD
     Route: 048
     Dates: start: 20081111

REACTIONS (1)
  - RETINAL HAEMORRHAGE [None]
